FAERS Safety Report 9154077 (Version 1)
Quarter: 2013Q1

REPORT INFORMATION
  Report Type: Spontaneous
  Country: US (occurrence: None)
  Receive Date: 20130307
  Receipt Date: 20130307
  Transmission Date: 20140127
  Serious: Yes (Death)
  Sender: FDA-Public Use
  Company Number: 2013P1002681

PATIENT
  Age: 75 Year
  Sex: Male

DRUGS (2)
  1. INFUMORPH [Suspect]
     Indication: PAIN
     Dates: end: 20130103
  2. INFUMORPH [Suspect]
     Indication: INTERVERTEBRAL DISC DEGENERATION
     Dates: end: 20130103

REACTIONS (1)
  - Cardio-respiratory arrest [None]
